FAERS Safety Report 8169139-1 (Version None)
Quarter: 2012Q1

REPORT INFORMATION
  Report Type: 
  Country: None (occurrence: None)
  Receive Date: 20120227
  Receipt Date: 20120220
  Transmission Date: 20120608
  Serious: Yes (Death, Other)
  Sender: FDA-Public Use
  Company Number: JP-ROCHE-1030042

PATIENT
  Sex: Female
  Weight: 58 kg

DRUGS (26)
  1. PREDNISOLONE [Concomitant]
     Route: 048
     Dates: start: 20090207, end: 20090403
  2. AZULFIDINE [Concomitant]
     Dosage: DOSAGE IS UNCERTAIN.
     Route: 048
  3. ACTEMRA [Suspect]
     Route: 041
     Dates: start: 20090606
  4. ACTEMRA [Suspect]
     Route: 041
     Dates: start: 20090307, end: 20090307
  5. PREDNISOLONE [Suspect]
     Route: 048
     Dates: start: 20090606
  6. PREDNISOLONE [Suspect]
     Route: 048
  7. ALFACALCIDOL [Suspect]
     Indication: OSTEOPOROSIS
     Route: 048
  8. CLARITHROMYCIN [Suspect]
     Indication: BRONCHITIS
     Route: 048
  9. RIMATIL [Concomitant]
     Dosage: DOSAGE IS UNCERTAIN.
     Route: 048
  10. ACTEMRA [Suspect]
     Route: 041
     Dates: start: 20081206, end: 20081206
  11. ACTEMRA [Suspect]
     Dosage: DOSAGE IS UNCERTAIN.
     Route: 041
     Dates: end: 20111001
  12. LANSOPRAZOLE [Suspect]
     Indication: PRODUCT USED FOR UNKNOWN INDICATION
     Route: 048
  13. OLOPATADINE HCL [Suspect]
     Indication: URTICARIA
     Route: 048
  14. PREDNISOLONE [Concomitant]
     Indication: RHEUMATOID ARTHRITIS
     Route: 048
     Dates: end: 20090206
  15. FUROSEMIDE [Suspect]
     Indication: PULMONARY HYPERTENSION
     Route: 048
  16. SPIRONOLACTONE [Suspect]
     Indication: PULMONARY HYPERTENSION
     Route: 048
  17. FERROUS FUMARATE [Suspect]
     Indication: IRON DEFICIENCY ANAEMIA
     Route: 048
  18. CYCLOSPORINE [Suspect]
     Indication: RHEUMATOID ARTHRITIS
     Route: 048
     Dates: end: 20090606
  19. CYCLOSPORINE [Suspect]
     Route: 048
  20. ACTEMRA [Suspect]
     Route: 041
     Dates: start: 20090110, end: 20090110
  21. ACTEMRA [Suspect]
     Route: 041
     Dates: start: 20090207, end: 20090207
  22. ACTEMRA [Suspect]
     Route: 041
     Dates: start: 20090404, end: 20090404
  23. ACTEMRA [Suspect]
     Route: 041
     Dates: start: 20090502, end: 20090502
  24. ACTEMRA [Suspect]
     Indication: RHEUMATOID ARTHRITIS
     Route: 041
     Dates: start: 20081101, end: 20081101
  25. PREDNISOLONE [Suspect]
     Indication: RHEUMATOID ARTHRITIS
     Route: 048
     Dates: start: 20090404, end: 20090605
  26. ISONIAZID [Concomitant]
     Indication: TUBERCULOSIS
     Route: 048
     Dates: start: 20080802, end: 20090606

REACTIONS (6)
  - PULMONARY HYPERTENSION [None]
  - BRONCHITIS [None]
  - URTICARIA [None]
  - OSTEOPOROSIS [None]
  - IRON DEFICIENCY ANAEMIA [None]
  - LUNG NEOPLASM MALIGNANT [None]
